FAERS Safety Report 16031385 (Version 1)
Quarter: 2019Q1

REPORT INFORMATION
  Report Type: Spontaneous
  Country: SE (occurrence: SE)
  Receive Date: 20190304
  Receipt Date: 20190304
  Transmission Date: 20190418
  Serious: Yes (Hospitalization)
  Sender: FDA-Public Use
  Company Number: SE-TEVA-2019-SE-1018728

PATIENT
  Age: 45 Year

DRUGS (4)
  1. PARAFLEX [Suspect]
     Active Substance: CHLORZOXAZONE
     Dosage: 15 ST
     Dates: start: 20161109, end: 20161109
  2. STESOLID [Suspect]
     Active Substance: DIAZEPAM
     Dates: start: 20161109, end: 20161109
  3. HALDOL [Suspect]
     Active Substance: HALOPERIDOL
     Dosage: 10 HALDOL
     Route: 048
     Dates: start: 20161109, end: 20161109
  4. COCILLANA-ETYFIN [Suspect]
     Active Substance: ETHYLMORPHINE HYDROCHLORIDE\HERBALS
     Route: 048
     Dates: start: 20161109, end: 20161109

REACTIONS (4)
  - Intentional overdose [Unknown]
  - Fatigue [Unknown]
  - Intentional self-injury [Unknown]
  - Headache [Unknown]

NARRATIVE: CASE EVENT DATE: 20161109
